FAERS Safety Report 23329200 (Version 1)
Quarter: 2023Q4

REPORT INFORMATION
  Report Type: Report from Study
  Country: IT (occurrence: IT)
  Receive Date: 20231222
  Receipt Date: 20231222
  Transmission Date: 20240110
  Serious: Yes (Other)
  Sender: FDA-Public Use
  Company Number: None

PATIENT
  Age: 62 Year
  Sex: Male

DRUGS (4)
  1. CARBOPLATIN [Suspect]
     Active Substance: CARBOPLATIN
     Indication: Lung neoplasm
     Dosage: 75MG/M2
     Dates: start: 20230511
  2. PEMETREXED [Suspect]
     Active Substance: PEMETREXED
     Indication: Lung neoplasm
     Dosage: 500 MG/M2
     Dates: start: 20230511
  3. NIVOLUMAB [Suspect]
     Active Substance: NIVOLUMAB
     Indication: Lung neoplasm
     Dosage: 360MG
     Dates: start: 20230511
  4. YERVOY [Suspect]
     Active Substance: IPILIMUMAB
     Indication: Lung neoplasm
     Dosage: 1 MG/KG
     Dates: start: 20230511

REACTIONS (5)
  - Dermatitis [Recovered/Resolved]
  - Hypertransaminasaemia [Recovering/Resolving]
  - Dysgeusia [Recovering/Resolving]
  - Balance disorder [Recovering/Resolving]
  - Drug-induced liver injury [Recovering/Resolving]

NARRATIVE: CASE EVENT DATE: 20230707
